FAERS Safety Report 9824555 (Version 1)
Quarter: 2014Q1

REPORT INFORMATION
  Report Type: Report from Study
  Country: US (occurrence: US)
  Receive Date: 20140117
  Receipt Date: 20140117
  Transmission Date: 20141002
  Serious: Yes (Hospitalization)
  Sender: FDA-Public Use
  Company Number: US-ROCHE-1332879

PATIENT
  Age: 18 Year
  Sex: Female
  Weight: 70.1 kg

DRUGS (3)
  1. NUTROPIN [Suspect]
     Indication: PRADER-WILLI SYNDROME
     Dosage: 3X/WEEK
     Route: 058
  2. DESOGESTREL [Concomitant]
     Route: 065
  3. ETHINYL ESTRADIOL [Concomitant]
     Route: 065

REACTIONS (3)
  - Knee operation [Unknown]
  - Arthralgia [Unknown]
  - Limb immobilisation [Unknown]
